FAERS Safety Report 17334957 (Version 1)
Quarter: 2020Q1

REPORT INFORMATION
  Report Type: Spontaneous
  Country: CA (occurrence: CA)
  Receive Date: 20200128
  Receipt Date: 20200128
  Transmission Date: 20200409
  Serious: Yes (Other)
  Sender: FDA-Public Use
  Company Number: CA-AUROBINDO-AUR-APL-2020-004047

PATIENT
  Age: 70 Year
  Sex: Female

DRUGS (27)
  1. OMALIZUMAB. [Suspect]
     Active Substance: OMALIZUMAB
     Dosage: UNK
     Route: 058
  2. METFORMIN [Suspect]
     Active Substance: METFORMIN HYDROCHLORIDE
     Indication: BLOOD GLUCOSE INCREASED
     Dosage: 500 MILLIGRAM, 3 TIMES A DAY
     Route: 065
  3. OMALIZUMAB. [Suspect]
     Active Substance: OMALIZUMAB
     Dosage: 300 MILLIGRAM
     Route: 058
  4. OMALIZUMAB. [Suspect]
     Active Substance: OMALIZUMAB
     Dosage: UNK
     Route: 058
  5. OMALIZUMAB. [Suspect]
     Active Substance: OMALIZUMAB
     Dosage: UNK
     Route: 058
  6. OMALIZUMAB. [Suspect]
     Active Substance: OMALIZUMAB
     Dosage: UNK
     Route: 058
  7. OMALIZUMAB. [Suspect]
     Active Substance: OMALIZUMAB
     Dosage: UNK
     Route: 058
  8. OMALIZUMAB. [Suspect]
     Active Substance: OMALIZUMAB
     Dosage: 300 MILLIGRAM
     Route: 058
  9. OMALIZUMAB. [Suspect]
     Active Substance: OMALIZUMAB
     Dosage: UNK
     Route: 058
  10. OMALIZUMAB. [Suspect]
     Active Substance: OMALIZUMAB
     Dosage: UNK
     Route: 058
  11. OMALIZUMAB. [Suspect]
     Active Substance: OMALIZUMAB
     Dosage: 300 MILLIGRAM
     Route: 058
  12. OMALIZUMAB. [Suspect]
     Active Substance: OMALIZUMAB
     Dosage: 300 MILLIGRAM
     Route: 058
  13. OMALIZUMAB. [Suspect]
     Active Substance: OMALIZUMAB
     Dosage: 300 MILLIGRAM
     Route: 058
  14. OMALIZUMAB. [Suspect]
     Active Substance: OMALIZUMAB
     Dosage: 300 MILLIGRAM
     Route: 058
  15. OMALIZUMAB. [Suspect]
     Active Substance: OMALIZUMAB
     Dosage: UNK
     Route: 058
  16. OMALIZUMAB. [Suspect]
     Active Substance: OMALIZUMAB
     Dosage: UNK
     Route: 058
  17. OMALIZUMAB. [Suspect]
     Active Substance: OMALIZUMAB
     Dosage: UNK
     Route: 058
  18. OMALIZUMAB. [Suspect]
     Active Substance: OMALIZUMAB
     Dosage: UNK
     Route: 058
  19. TERBUTALINE SULFATE. [Concomitant]
     Active Substance: TERBUTALINE SULFATE
     Indication: PRODUCT USED FOR UNKNOWN INDICATION
     Dosage: UNK
     Route: 065
  20. OMALIZUMAB. [Suspect]
     Active Substance: OMALIZUMAB
     Indication: CHRONIC SPONTANEOUS URTICARIA
     Dosage: 300 MILLIGRAM
     Route: 058
  21. OMALIZUMAB. [Suspect]
     Active Substance: OMALIZUMAB
     Dosage: 300 MILLIGRAM
     Route: 058
  22. OMALIZUMAB. [Suspect]
     Active Substance: OMALIZUMAB
     Dosage: UNK
     Route: 058
  23. OMALIZUMAB. [Suspect]
     Active Substance: OMALIZUMAB
     Dosage: UNK
     Route: 058
  24. OMALIZUMAB. [Suspect]
     Active Substance: OMALIZUMAB
     Dosage: UNK
     Route: 058
  25. OMALIZUMAB. [Suspect]
     Active Substance: OMALIZUMAB
     Dosage: UNK
     Route: 058
  26. OMALIZUMAB. [Suspect]
     Active Substance: OMALIZUMAB
     Dosage: UNK
     Route: 058
  27. PULMICORT TURBUHALER [Concomitant]
     Active Substance: BUDESONIDE
     Indication: PRODUCT USED FOR UNKNOWN INDICATION
     Dosage: UNK
     Route: 065

REACTIONS (25)
  - Weight increased [Not Recovered/Not Resolved]
  - Contusion [Not Recovered/Not Resolved]
  - Nausea [Not Recovered/Not Resolved]
  - Pruritus [Not Recovered/Not Resolved]
  - Tooth infection [Not Recovered/Not Resolved]
  - Arthralgia [Not Recovered/Not Resolved]
  - Foot fracture [Not Recovered/Not Resolved]
  - Injection site erythema [Not Recovered/Not Resolved]
  - Upper limb fracture [Not Recovered/Not Resolved]
  - Oropharyngeal pain [Not Recovered/Not Resolved]
  - Tongue blistering [Not Recovered/Not Resolved]
  - Type 2 diabetes mellitus [Not Recovered/Not Resolved]
  - Heart rate increased [Not Recovered/Not Resolved]
  - Blood glucose increased [Not Recovered/Not Resolved]
  - Musculoskeletal pain [Not Recovered/Not Resolved]
  - Blood pressure increased [Not Recovered/Not Resolved]
  - Food allergy [Not Recovered/Not Resolved]
  - Middle insomnia [Not Recovered/Not Resolved]
  - Urticaria [Not Recovered/Not Resolved]
  - Weight decreased [Not Recovered/Not Resolved]
  - Infected cyst [Not Recovered/Not Resolved]
  - Injection site pain [Not Recovered/Not Resolved]
  - Peripheral swelling [Not Recovered/Not Resolved]
  - Swollen tongue [Not Recovered/Not Resolved]
  - Gingivitis [Not Recovered/Not Resolved]
